FAERS Safety Report 21813254 (Version 2)
Quarter: 2023Q1

REPORT INFORMATION
  Report Type: Spontaneous
  Country: US (occurrence: US)
  Receive Date: 20230103
  Receipt Date: 20230103
  Transmission Date: 20230418
  Serious: No
  Sender: FDA-Public Use
  Company Number: US-ALKERMES INC.-ALK-2022-006181

PATIENT
  Sex: Male

DRUGS (2)
  1. ARISTADA INITIO [Suspect]
     Active Substance: ARIPIPRAZOLE LAUROXIL
     Indication: Product used for unknown indication
     Dosage: UNK, ONE TIME DOSE
     Route: 030
     Dates: start: 202212
  2. ARISTADA [Suspect]
     Active Substance: ARIPIPRAZOLE LAUROXIL
     Indication: Product used for unknown indication
     Dosage: UNK, Q2MO
     Route: 030
     Dates: start: 202212

REACTIONS (5)
  - Fatigue [Unknown]
  - Psychomotor hyperactivity [Unknown]
  - Patient dissatisfaction with treatment [Unknown]
  - Injection site pain [Unknown]
  - Akathisia [Unknown]

NARRATIVE: CASE EVENT DATE: 20221201
